FAERS Safety Report 7853087-8 (Version None)
Quarter: 2011Q3

REPORT INFORMATION
  Report Type: 
  Country: None (occurrence: None)
  Receive Date: 20110915
  Receipt Date: 20110428
  Transmission Date: 20111222
  Serious: Yes (Hospitalization)
  Sender: FDA-Public Use
  Company Number: 2011028378

PATIENT
  Sex: Female
  Weight: 89.3586 kg

DRUGS (11)
  1. PROZAC [Concomitant]
  2. PRIVIGEN [Suspect]
     Indication: IMMUNODEFICIENCY COMMON VARIABLE
     Dosage: SEE IMAGE
     Route: 042
     Dates: start: 20101201
  3. SINGULAIR [Concomitant]
  4. ALBUTEROL [Concomitant]
  5. ESTRADIOL [Concomitant]
  6. SYMBICORT [Concomitant]
  7. SYNTHROID [Concomitant]
  8. MIRAPEX [Concomitant]
  9. CIPRO [Concomitant]
  10. IBUPROFEN [Concomitant]
  11. LITHIUM CARBONATE [Concomitant]

REACTIONS (8)
  - MENINGITIS ASEPTIC [None]
  - DIARRHOEA [None]
  - PAIN [None]
  - CHILLS [None]
  - VOMITING [None]
  - PHOTOPHOBIA [None]
  - MUSCULOSKELETAL PAIN [None]
  - NAUSEA [None]
